FAERS Safety Report 25174667 (Version 2)
Quarter: 2025Q3

REPORT INFORMATION
  Report Type: Report from Study
  Country: JP (occurrence: JP)
  Receive Date: 20250408
  Receipt Date: 20250729
  Transmission Date: 20251020
  Serious: Yes (Other)
  Sender: ALEXION PHARMACEUTICALS
  Company Number: JP-ASTRAZENECA-250008962_011620_P_1

PATIENT
  Age: 54 Year
  Sex: Female
  Weight: 59 kg

DRUGS (1)
  1. OLAPARIB [Suspect]
     Active Substance: OLAPARIB
     Indication: Breast cancer
     Dosage: 300 MILLIGRAM, QD
     Dates: start: 20231209, end: 20241129

REACTIONS (5)
  - Thrombocytopenia [Unknown]
  - Red blood cell count decreased [Recovered/Resolved]
  - Haemoglobin decreased [Recovered/Resolved]
  - Haematocrit decreased [Unknown]
  - Lymphocyte count decreased [Unknown]
